FAERS Safety Report 9714039 (Version 1)
Quarter: 2013Q4

REPORT INFORMATION
  Report Type: Spontaneous
  Country: US (occurrence: US)
  Receive Date: 20131126
  Receipt Date: 20131126
  Transmission Date: 20140711
  Serious: No
  Sender: FDA-Public Use
  Company Number: US-GILEAD-2008-0018699

PATIENT
  Sex: Male

DRUGS (9)
  1. LETAIRIS [Suspect]
     Indication: PULMONARY ARTERIAL HYPERTENSION
     Route: 048
     Dates: start: 20080926, end: 20081020
  2. REVATIO [Concomitant]
  3. XOPENEX [Concomitant]
  4. ASPIRIN [Concomitant]
  5. PULMICORT [Concomitant]
  6. KLOR-CON [Concomitant]
  7. FUROSEMIDE [Concomitant]
  8. DIOVAN [Concomitant]
  9. PREDNISONE [Concomitant]

REACTIONS (2)
  - Oedema peripheral [None]
  - Flushing [None]
